FAERS Safety Report 6214443-7 (Version None)
Quarter: 2009Q2

REPORT INFORMATION
  Report Type: 
  Country: None (occurrence: None)
  Receive Date: 20090529
  Receipt Date: 20080918
  Transmission Date: 20091009
  Serious: Yes (Other)
  Sender: FDA-Public Use
  Company Number: 1-15505026

PATIENT
  Sex: Female

DRUGS (1)
  1. QUALAQUIN [Suspect]
     Indication: MUSCLE SPASMS
     Dosage: 324 MG, ORAL
     Route: 048
     Dates: start: 20050726, end: 20051031

REACTIONS (2)
  - CHEST PAIN [None]
  - THROMBOCYTOPENIA [None]
